APPROVED DRUG PRODUCT: TAMIFLU
Active Ingredient: OSELTAMIVIR PHOSPHATE
Strength: EQ 30MG BASE
Dosage Form/Route: CAPSULE;ORAL
Application: N021087 | Product #003
Applicant: HOFFMANN LA ROCHE INC
Approved: Jul 2, 2007 | RLD: Yes | RS: No | Type: DISCN